FAERS Safety Report 10094354 (Version 2)
Quarter: 2014Q2

REPORT INFORMATION
  Report Type: Spontaneous
  Country: GB (occurrence: GB)
  Receive Date: 20140422
  Receipt Date: 20140606
  Transmission Date: 20141212
  Serious: Yes (Other)
  Sender: FDA-Public Use
  Company Number: GB-MYLANLABS-2014S1008336

PATIENT
  Age: 56 Year
  Sex: 0

DRUGS (3)
  1. NEVIRAPINE [Suspect]
     Indication: HIV INFECTION
  2. DARUNAVIR [Suspect]
     Indication: HIV INFECTION
     Dosage: UNK
     Dates: start: 20100504, end: 20100805
  3. TRUVADA [Suspect]
     Indication: HIV INFECTION

REACTIONS (8)
  - Virologic failure [Recovered/Resolved]
  - Peripheral swelling [Recovered/Resolved]
  - Chromaturia [Recovered/Resolved]
  - Insomnia [Recovered/Resolved]
  - Oedema peripheral [Recovered/Resolved]
  - Skin discolouration [Recovered/Resolved]
  - Diarrhoea [Recovered/Resolved]
  - Drug ineffective [Recovered/Resolved]
